FAERS Safety Report 20141606 (Version 1)
Quarter: 2021Q4

REPORT INFORMATION
  Report Type: Spontaneous
  Country: US (occurrence: US)
  Receive Date: 20211202
  Receipt Date: 20211202
  Transmission Date: 20220304
  Serious: Yes (Other)
  Sender: FDA-Public Use
  Company Number: US-NOVARTISPH-NVSC2021US271964

PATIENT
  Age: 82 Year
  Sex: Female

DRUGS (2)
  1. MYCOPHENOLATE MOFETIL [Suspect]
     Active Substance: MYCOPHENOLATE MOFETIL
     Indication: Cholangitis sclerosing
     Dosage: 1000 MG, BID
     Route: 065
  2. METHYLPREDNISOLONE [Suspect]
     Active Substance: METHYLPREDNISOLONE
     Indication: Cholangitis sclerosing
     Dosage: 2 MG/KG, UNKNOWN
     Route: 065

REACTIONS (3)
  - Cholangitis sclerosing [Unknown]
  - Disease progression [Unknown]
  - Product use in unapproved indication [Unknown]
